FAERS Safety Report 18282923 (Version 2)
Quarter: 2021Q1

REPORT INFORMATION
  Report Type: Report from Study
  Country: TH (occurrence: TH)
  Receive Date: 20200918
  Receipt Date: 20210317
  Transmission Date: 20210419
  Serious: Yes (Hospitalization)
  Sender: FDA-Public Use
  Company Number: TH-EISAI MEDICAL RESEARCH-EC-2020-080630

PATIENT
  Age: 66 Year
  Sex: Female

DRUGS (4)
  1. KEYTRUDA [Suspect]
     Active Substance: PEMBROLIZUMAB
     Route: 042
     Dates: start: 20200909, end: 20210204
  2. KEYTRUDA [Suspect]
     Active Substance: PEMBROLIZUMAB
     Indication: MICROSATELLITE INSTABILITY CANCER
     Route: 042
     Dates: start: 20200723, end: 20200723
  3. FLUVASTATIN [Concomitant]
     Active Substance: FLUVASTATIN SODIUM
  4. LENVIMA [Suspect]
     Active Substance: LENVATINIB
     Indication: MICROSATELLITE INSTABILITY CANCER
     Dosage: UNKNOWN DOSE AND FREQUENCY
     Route: 048
     Dates: start: 20200723, end: 20200723

REACTIONS (4)
  - Hypovolaemic shock [Recovering/Resolving]
  - Septic shock [Recovering/Resolving]
  - Intestinal obstruction [Recovering/Resolving]
  - Intestinal perforation [Recovering/Resolving]

NARRATIVE: CASE EVENT DATE: 2020
